FAERS Safety Report 10155321 (Version 1)
Quarter: 2014Q2

REPORT INFORMATION
  Report Type: Spontaneous
  Country: MY (occurrence: MY)
  Receive Date: 20140506
  Receipt Date: 20140506
  Transmission Date: 20141212
  Serious: Yes (Other)
  Sender: FDA-Public Use
  Company Number: PHHY2014MY053701

PATIENT
  Age: 35 Year
  Sex: Female

DRUGS (4)
  1. CICLOSPORIN [Suspect]
     Route: 042
  2. DEXAMETHASONE [Suspect]
     Route: 042
  3. IMMUNGLOBULIN [Concomitant]
  4. ANTIBIOTICS [Concomitant]

REACTIONS (6)
  - Pneumonia cytomegaloviral [Recovering/Resolving]
  - Cytomegalovirus colitis [Recovering/Resolving]
  - Nosocomial infection [Unknown]
  - Multi-organ failure [Unknown]
  - Maternal exposure during pregnancy [Unknown]
  - Normal newborn [Unknown]
